FAERS Safety Report 21215619 (Version 4)
Quarter: 2022Q4

REPORT INFORMATION
  Report Type: Spontaneous
  Country: US (occurrence: US)
  Receive Date: 20220816
  Receipt Date: 20221121
  Transmission Date: 20230113
  Serious: No
  Sender: FDA-Public Use
  Company Number: US-PFIZER INC-PV202200043519

PATIENT
  Age: 71 Year
  Sex: Female

DRUGS (5)
  1. IBRANCE [Suspect]
     Active Substance: PALBOCICLIB
     Dosage: 125 MG
     Dates: start: 20220720
  2. IBRANCE [Suspect]
     Active Substance: PALBOCICLIB
     Dosage: 100 MG
     Dates: start: 202208
  3. LEVOTHYROXINE [Concomitant]
     Active Substance: LEVOTHYROXINE
     Dosage: UNK
  4. CALCIUM [Concomitant]
     Active Substance: CALCIUM
     Dosage: UNK
  5. CHOLECALCIFEROL [Concomitant]
     Active Substance: CHOLECALCIFEROL
     Dosage: UNK

REACTIONS (3)
  - Neoplasm progression [Not Recovered/Not Resolved]
  - White blood cell count decreased [Unknown]
  - Muscle spasms [Unknown]

NARRATIVE: CASE EVENT DATE: 20220101
